FAERS Safety Report 14677712 (Version 5)
Quarter: 2019Q3

REPORT INFORMATION
  Report Type: Spontaneous
  Country: US (occurrence: US)
  Receive Date: 20180325
  Receipt Date: 20190708
  Transmission Date: 20191004
  Serious: Yes (Other)
  Sender: FDA-Public Use
  Company Number: US-SHIRE-US201810748

PATIENT
  Age: 56 Year
  Sex: Female
  Weight: 63.49 kg

DRUGS (2)
  1. RESTASIS [Concomitant]
     Active Substance: CYCLOSPORINE
     Indication: PRODUCT USED FOR UNKNOWN INDICATION
  2. XIIDRA [Suspect]
     Active Substance: LIFITEGRAST
     Indication: DRY EYE
     Dosage: 1 GTT, 2X/DAY:BID
     Route: 047
     Dates: start: 20180315

REACTIONS (9)
  - Nausea [Not Recovered/Not Resolved]
  - Taste disorder [Not Recovered/Not Resolved]
  - Vision blurred [Unknown]
  - Measles [Unknown]
  - Instillation site lacrimation [Unknown]
  - Instillation site erythema [Not Recovered/Not Resolved]
  - Eye irritation [Unknown]
  - Instillation site burn [Not Recovered/Not Resolved]
  - Instillation site reaction [Unknown]

NARRATIVE: CASE EVENT DATE: 20180315
